FAERS Safety Report 4343982-9 (Version None)
Quarter: 2004Q2

REPORT INFORMATION
  Report Type: 
  Country: None (occurrence: None)
  Receive Date: 20040419
  Receipt Date: 20040406
  Transmission Date: 20050107
  Serious: Yes (Hospitalization)
  Sender: FDA-Public Use
  Company Number: B01200400348

PATIENT
  Age: 75 Year
  Sex: Male

DRUGS (10)
  1. CLOPIDOGREL BISULFATE [Suspect]
     Indication: MYOCARDIAL ISCHAEMIA
     Dosage: 75 MG QD   ORAL
     Route: 048
     Dates: start: 20031114
  2. CLOPIDOGREL BISULFATE [Suspect]
     Indication: PROPHYLAXIS
     Dosage: 75 MG QD   ORAL
     Route: 048
     Dates: start: 20031114
  3. ACETYLSALICYLIC ACID SRT [Concomitant]
  4. VASOTEC [Concomitant]
  5. VIOXX [Concomitant]
  6. GLYBURIDE [Concomitant]
  7. HYDROCHLOROTHIAZIDE [Concomitant]
  8. LIPITOR [Concomitant]
  9. NORVASC [Concomitant]
  10. RANITIDINE [Concomitant]

REACTIONS (2)
  - ADENOMATOUS POLYPOSIS COLI [None]
  - DIVERTICULUM INTESTINAL HAEMORRHAGIC [None]
